FAERS Safety Report 24576730 (Version 1)
Quarter: 2024Q4

REPORT INFORMATION
  Report Type: Report from Study
  Country: US (occurrence: US)
  Receive Date: 20241104
  Receipt Date: 20241104
  Transmission Date: 20250115
  Serious: Yes (Other)
  Sender: JOHNSON AND JOHNSON
  Company Number: US-JNJFOC-20241070922

PATIENT
  Sex: Male

DRUGS (3)
  1. SPRAVATO [Suspect]
     Active Substance: ESKETAMINE
     Indication: Depression
     Dosage: ^56 MG, 2 TOTAL DOSES^
     Dates: start: 20240206, end: 20240208
  2. SPRAVATO [Suspect]
     Active Substance: ESKETAMINE
     Dosage: ^84 MG, 37 TOTAL DOSES^
     Dates: start: 20240212, end: 20241021
  3. AUVELITY [Concomitant]
     Active Substance: BUPROPION HYDROCHLORIDE\DEXTROMETHORPHAN HYDROBROMIDE

REACTIONS (4)
  - Knee arthroplasty [Unknown]
  - Insomnia [Unknown]
  - Pain [Unknown]
  - Therapeutic response decreased [Unknown]

NARRATIVE: CASE EVENT DATE: 20240101
